FAERS Safety Report 8235352-8 (Version None)
Quarter: 2012Q1

REPORT INFORMATION
  Report Type: 
  Country: None (occurrence: None)
  Receive Date: 20120326
  Receipt Date: 20120319
  Transmission Date: 20120608
  Serious: Yes (Life-Threatening, Other)
  Sender: FDA-Public Use
  Company Number: DE-CELGENEUS-062-50794-09100488

PATIENT
  Age: 68 Year
  Sex: Female
  Weight: 53.5 kg

DRUGS (9)
  1. ALLOPURINOL [Concomitant]
     Indication: PROPHYLAXIS
     Dosage: 100 MILLIGRAM
     Route: 048
     Dates: start: 20090905, end: 20091003
  2. GRANISETRON HYDROCHLORIDE [Concomitant]
     Dosage: 1.5 MILLIGRAM
     Route: 041
     Dates: start: 20090917, end: 20091002
  3. AMLODIPINE [Concomitant]
     Indication: PROPHYLAXIS
     Dosage: 5 MILLIGRAM
     Route: 048
     Dates: end: 20091003
  4. LEVOFLOXACIN [Suspect]
     Indication: INFECTION PROPHYLAXIS
     Dosage: 500 MILLIGRAM
     Route: 048
     Dates: start: 20090905, end: 20091002
  5. VIDAZA [Suspect]
     Indication: ACUTE MYELOID LEUKAEMIA
     Dosage: 59.8 MILLIGRAM
     Route: 041
     Dates: start: 20090917, end: 20090921
  6. DAUNORUBICIN HCL [Concomitant]
     Route: 041
  7. CYTARABINE [Concomitant]
     Route: 041
  8. CYTARABINE [Concomitant]
     Indication: ACUTE MYELOID LEUKAEMIA
     Dosage: 157 MILLIGRAM
     Route: 041
     Dates: start: 20090923, end: 20090929
  9. DAUNORUBICIN HCL [Concomitant]
     Indication: ACUTE MYELOID LEUKAEMIA
     Dosage: 70.6 MILLIGRAM
     Route: 041
     Dates: start: 20090925, end: 20090927

REACTIONS (13)
  - HAEMOLYSIS [None]
  - NEUTROPENIA [None]
  - PNEUMONIA [None]
  - FATIGUE [None]
  - THROMBOCYTOPENIA [None]
  - DYSPEPSIA [None]
  - PLEURITIC PAIN [None]
  - TRANSFUSION REACTION [None]
  - CARDIAC FAILURE [None]
  - NAUSEA [None]
  - DECREASED APPETITE [None]
  - LEUKOPENIA [None]
  - VOMITING [None]
